FAERS Safety Report 5397289-1 (Version None)
Quarter: 2007Q3

REPORT INFORMATION
  Report Type: 
  Country: None (occurrence: None)
  Receive Date: 20070723
  Receipt Date: 20070711
  Transmission Date: 20080115
  Serious: Yes (Other)
  Sender: FDA-Public Use
  Company Number: 2007-03265

PATIENT
  Age: 50 Year
  Sex: Female

DRUGS (2)
  1. ACYCLOVIR [Suspect]
     Indication: NECROTISING RETINITIS
     Dosage: 1500MG/M2DAY IN 3 DIVIDED DOSES, INTRAVENOUS
     Route: 042
     Dates: start: 20050901, end: 20050901
  2. ASPIRIN [Concomitant]

REACTIONS (1)
  - RENAL FAILURE ACUTE [None]
